FAERS Safety Report 11598625 (Version 1)
Quarter: 2015Q4

REPORT INFORMATION
  Report Type: Report from Study
  Country: BR (occurrence: BR)
  Receive Date: 20151006
  Receipt Date: 20151006
  Transmission Date: 20160304
  Serious: Yes (Hospitalization)
  Sender: FDA-Public Use
  Company Number: BR-ABBVIE-15P-020-1474247-00

PATIENT
  Age: 8 Month
  Sex: Male
  Weight: 6.9 kg

DRUGS (1)
  1. SYNAGIS [Suspect]
     Active Substance: PALIVIZUMAB
     Indication: BRONCHOPULMONARY DYSPLASIA
     Route: 030
     Dates: start: 20150402

REACTIONS (4)
  - Cough [Recovered/Resolved]
  - Bronchiolitis [Recovering/Resolving]
  - Productive cough [Not Recovered/Not Resolved]
  - Wheezing [Unknown]

NARRATIVE: CASE EVENT DATE: 20150505
